FAERS Safety Report 17858761 (Version 2)
Quarter: 2020Q2

REPORT INFORMATION
  Report Type: Report from Study
  Country: None (occurrence: US)
  Receive Date: 20200604
  Receipt Date: 20200605
  Transmission Date: 20200714
  Serious: No
  Sender: FDA-Public Use
  Company Number: US-US WORLDMEDS, LLC-USW201912-002348

PATIENT
  Age: 73 Year
  Sex: Male
  Weight: 57.15 kg

DRUGS (13)
  1. APOKYN [Suspect]
     Active Substance: APOMORPHINE HYDROCHLORIDE
     Dosage: STRENGTH: 30MG/10ML
     Route: 058
     Dates: start: 20191208
  2. MYRBETRIQ [Concomitant]
     Active Substance: MIRABEGRON
     Indication: HYPERTONIC BLADDER
     Dosage: UNKNOWN
  3. MIRALAX [Concomitant]
     Active Substance: POLYETHYLENE GLYCOL 3350
     Indication: LAXATIVE SUPPORTIVE CARE
  4. RASAGLINE [Concomitant]
     Route: 048
  5. APOKYN [Suspect]
     Active Substance: APOMORPHINE HYDROCHLORIDE
     Route: 058
     Dates: start: 201911
  6. TIGAN [Concomitant]
     Active Substance: TRIMETHOBENZAMIDE HYDROCHLORIDE
     Indication: NAUSEA
     Dosage: UNKNOWN
  7. APOKYN [Suspect]
     Active Substance: APOMORPHINE HYDROCHLORIDE
  8. APOKYN [Suspect]
     Active Substance: APOMORPHINE HYDROCHLORIDE
     Indication: PARKINSON^S DISEASE
     Dosage: STRENGTH: 30MG/10ML
     Route: 058
     Dates: start: 20191206, end: 20191213
  9. CARBIDOPA LEVADOPA [Concomitant]
     Indication: PARKINSON^S DISEASE
     Route: 048
  10. FLUDROCORTISONE [Concomitant]
     Active Substance: FLUDROCORTISONE
     Indication: BLOOD PRESSURE DECREASED
     Dosage: UNKNOWN
  11. APOKYN [Suspect]
     Active Substance: APOMORPHINE HYDROCHLORIDE
     Dosage: STRENGTH: 30MG/10ML
     Route: 058
     Dates: start: 20191206
  12. ENTACAPONE. [Concomitant]
     Active Substance: ENTACAPONE
     Route: 048
  13. RASAGLINE [Concomitant]
     Route: 048

REACTIONS (9)
  - Asthenia [Unknown]
  - Peripheral swelling [Unknown]
  - Feeling drunk [Recovered/Resolved]
  - Therapeutic response decreased [Unknown]
  - Memory impairment [Recovered/Resolved]
  - Malaise [Recovered/Resolved]
  - Tremor [Unknown]
  - Dizziness [Recovered/Resolved]
  - Thinking abnormal [Recovered/Resolved]

NARRATIVE: CASE EVENT DATE: 20191210
